FAERS Safety Report 6556904-7 (Version None)
Quarter: 2010Q1

REPORT INFORMATION
  Report Type: 
  Country: None (occurrence: None)
  Receive Date: 20100128
  Receipt Date: 20100114
  Transmission Date: 20100710
  Serious: Yes (Other)
  Sender: FDA-Public Use
  Company Number: GB-MYLANLABS-2009S1020478

PATIENT
  Age: 37 Year
  Sex: Female

DRUGS (2)
  1. CLOMIPRAMINE HCL [Suspect]
     Indication: NARCOLEPSY
  2. MODAFINIL [Suspect]
     Indication: DRUG USE FOR UNKNOWN INDICATION

REACTIONS (1)
  - ANGIOEDEMA [None]
